FAERS Safety Report 9514641 (Version 1)
Quarter: 2013Q3

REPORT INFORMATION
  Report Type: Spontaneous
  Country: IT (occurrence: None)
  Receive Date: 20130906
  Receipt Date: 20130906
  Transmission Date: 20140515
  Serious: Yes (Death)
  Sender: FDA-Public Use
  Company Number: NSR_01238_2013

PATIENT
  Sex: Male
  Weight: 75 kg

DRUGS (2)
  1. TRAMADOL [Suspect]
     Indication: PRODUCT USED FOR UNKNOWN INDICATION
     Dosage: NOT THE PRESCRIBED DOSE
  2. PROPOFOL [Suspect]
     Indication: PRODUCT USED FOR UNKNOWN INDICATION
     Dosage: NOT THE PRESCRIBED DOSE

REACTIONS (14)
  - Toxicity to various agents [None]
  - Accidental overdose [None]
  - Dyspnoea [None]
  - Cyanosis [None]
  - Atrial fibrillation [None]
  - Acidosis [None]
  - Troponin T increased [None]
  - Myoglobin blood increased [None]
  - Pulmonary oedema [None]
  - Pulmonary thrombosis [None]
  - Hepatic congestion [None]
  - Acute respiratory failure [None]
  - Cardio-respiratory arrest [None]
  - Drug abuse [None]
